FAERS Safety Report 20391593 (Version 8)
Quarter: 2022Q2

REPORT INFORMATION
  Report Type: Report from Study
  Country: US (occurrence: US)
  Receive Date: 20220128
  Receipt Date: 20220504
  Transmission Date: 20220721
  Serious: No
  Sender: FDA-Public Use
  Company Number: US-NOVARTISTESTPH-NVSC2022US018309

PATIENT
  Sex: Female

DRUGS (3)
  1. ENTRESTO [Suspect]
     Active Substance: SACUBITRIL\VALSARTAN
     Indication: Product used for unknown indication
     Dosage: 0.5 DOSAGE FORM OF 24/26 MG, BID
     Route: 048
     Dates: start: 20220124
  2. ENTRESTO [Suspect]
     Active Substance: SACUBITRIL\VALSARTAN
     Dosage: 1 DOSAGE FORM OF 24/26 MG, BID
     Route: 048
  3. ENTRESTO [Suspect]
     Active Substance: SACUBITRIL\VALSARTAN
     Dosage: 50 MG, BID (24/26 MG)
     Route: 048
     Dates: start: 20220124, end: 202204

REACTIONS (13)
  - Pain in extremity [Unknown]
  - Feeling abnormal [Recovering/Resolving]
  - Weight increased [Unknown]
  - Fluid retention [Unknown]
  - Peripheral swelling [Recovering/Resolving]
  - Burning sensation [Not Recovered/Not Resolved]
  - Feeling hot [Not Recovered/Not Resolved]
  - Blood thyroid stimulating hormone increased [Unknown]
  - Lacrimation increased [Recovering/Resolving]
  - Genital swelling [Not Recovered/Not Resolved]
  - Fatigue [Unknown]
  - Pruritus [Recovering/Resolving]
  - Wrong technique in product usage process [Recovered/Resolved]
